FAERS Safety Report 21730152 (Version 1)
Quarter: 2022Q4

REPORT INFORMATION
  Report Type: Report from Study
  Country: NL (occurrence: NL)
  Receive Date: 20221214
  Receipt Date: 20221214
  Transmission Date: 20230112
  Serious: Yes (Disabling, Other)
  Sender: FDA-Public Use
  Company Number: NL-ABBVIE-4232937

PATIENT
  Age: 66 Year
  Sex: Female

DRUGS (7)
  1. CARBIDOPA\LEVODOPA [Suspect]
     Active Substance: CARBIDOPA\LEVODOPA
     Indication: Parkinson^s disease
     Dosage: MD: 12.0 ML, CD: 3.1  ML/H, ED: 3.5 ML
  2. CARBIDOPA\LEVODOPA [Suspect]
     Active Substance: CARBIDOPA\LEVODOPA
     Dosage: MD: 12.0 ML, CD: 3.6  ML/H, ED: 3.5 ML
     Dates: start: 20141001
  3. BETAMETHASONE DIPROPIONATE\CALCIPOTRIENE HYDRATE [Concomitant]
     Active Substance: BETAMETHASONE DIPROPIONATE\CALCIPOTRIENE HYDRATE
     Indication: Stoma site reaction
  4. NORTRIPTYLINE [Concomitant]
     Active Substance: NORTRIPTYLINE
     Indication: Product used for unknown indication
  5. CARBIDOPA\LEVODOPA [Concomitant]
     Active Substance: CARBIDOPA\LEVODOPA
     Indication: Parkinson^s disease
  6. PRAMIPEXOLE [Concomitant]
     Active Substance: PRAMIPEXOLE
     Indication: Product used for unknown indication
  7. CLONAZEPAM [Concomitant]
     Active Substance: CLONAZEPAM
     Indication: Product used for unknown indication

REACTIONS (4)
  - Fall [Not Recovered/Not Resolved]
  - Fracture [Not Recovered/Not Resolved]
  - Osteoarthritis [Not Recovered/Not Resolved]
  - Gait disturbance [Not Recovered/Not Resolved]
